FAERS Safety Report 6872465 (Version 9)
Quarter: 2013Q4

REPORT INFORMATION
  Report Type: Spontaneous
  Country: US (occurrence: US)
  Receive Date: 20061027
  Receipt Date: 20131017
  Transmission Date: 20140711
  Serious: Yes (Hospitalization, Other)
  Sender: FDA-Public Use
  Company Number: US-BIOGENIDEC-2006BI015200

PATIENT
  Age: 46 Year
  Sex: Female
  Weight: 72 kg

DRUGS (7)
  1. AVONEX [Suspect]
     Indication: MULTIPLE SCLEROSIS
     Route: 030
     Dates: start: 20021101, end: 200308
  2. AVONEX [Suspect]
     Indication: MULTIPLE SCLEROSIS
     Route: 030
     Dates: start: 200308
  3. TOPROL XL [Concomitant]
     Indication: HYPERTENSION
  4. HYDROCHLOROTHIAZIDE [Concomitant]
     Indication: HYPERTENSION
  5. KLOR-CON [Concomitant]
     Indication: HYPERTENSION
  6. AMANTADINE [Concomitant]
     Indication: FATIGUE
  7. OMEPRAZOLE [Concomitant]
     Indication: HIATUS HERNIA

REACTIONS (8)
  - Intraductal proliferative breast lesion [Recovered/Resolved]
  - Breast cancer stage I [Recovered/Resolved]
  - Malignant melanoma [Not Recovered/Not Resolved]
  - Influenza [Recovered/Resolved]
  - Iatrogenic injury [Recovered/Resolved]
  - Impaired healing [Not Recovered/Not Resolved]
  - Anaesthetic complication [Unknown]
  - Pain in extremity [Not Recovered/Not Resolved]
